FAERS Safety Report 9535917 (Version 1)
Quarter: 2013Q1

REPORT INFORMATION
  Report Type: Spontaneous
  Country: US (occurrence: None)
  Receive Date: 20130307
  Receipt Date: 20130307
  Transmission Date: 20140127
  Serious: Yes (Other)
  Sender: FDA-Public Use
  Company Number: PHEH2012US004844

PATIENT
  Age: 55 Year
  Sex: Female

DRUGS (1)
  1. TASIGNA (AMN107) CAPSULE [Suspect]
     Indication: CHRONIC MYELOID LEUKAEMIA
     Route: 048
     Dates: start: 20120120, end: 20120130

REACTIONS (4)
  - Hepatomegaly [None]
  - Alanine aminotransferase increased [None]
  - Blood glucose increased [None]
  - Somnolence [None]
